FAERS Safety Report 25050578 (Version 1)
Quarter: 2025Q1

REPORT INFORMATION
  Report Type: Spontaneous
  Country: CN (occurrence: CN)
  Receive Date: 20250307
  Receipt Date: 20250307
  Transmission Date: 20250409
  Serious: Yes (Hospitalization, Other)
  Sender: NOVARTIS
  Company Number: CN-002147023-NVSC2025CN036520

PATIENT
  Age: 40 Year
  Sex: Female
  Weight: 45 kg

DRUGS (5)
  1. ENTRESTO [Suspect]
     Active Substance: SACUBITRIL\VALSARTAN
     Indication: Hypertension
     Dosage: 50.000 MG, BID
     Route: 048
     Dates: start: 20190418, end: 20250210
  2. ENTRESTO [Suspect]
     Active Substance: SACUBITRIL\VALSARTAN
     Indication: Arteriosclerosis coronary artery
  3. ENTRESTO [Suspect]
     Active Substance: SACUBITRIL\VALSARTAN
     Indication: Angina pectoris
  4. ENTRESTO [Suspect]
     Active Substance: SACUBITRIL\VALSARTAN
     Indication: Symptomatic treatment
  5. ENTRESTO [Suspect]
     Active Substance: SACUBITRIL\VALSARTAN
     Indication: Systemic lupus erythematosus

REACTIONS (3)
  - Chest discomfort [Unknown]
  - Chest pain [Unknown]
  - Renal impairment [Unknown]

NARRATIVE: CASE EVENT DATE: 20250205
